FAERS Safety Report 6136367-6 (Version None)
Quarter: 2009Q1

REPORT INFORMATION
  Report Type: 
  Country: None (occurrence: None)
  Receive Date: 20090330
  Receipt Date: 20090317
  Transmission Date: 20090719
  Serious: Yes (Hospitalization)
  Sender: FDA-Public Use
  Company Number: US-ROCHE-622216

PATIENT
  Sex: Female
  Weight: 59 kg

DRUGS (10)
  1. CAPECITABINE [Suspect]
     Indication: BREAST CANCER
     Dosage: 04 DOSEFORMS OF 500 MG DAILY
     Route: 048
     Dates: start: 20090129, end: 20090311
  2. ATIVAN [Concomitant]
  3. VITAMIN E [Concomitant]
  4. PROTONIX [Concomitant]
  5. CELEXA [Concomitant]
     Dosage: DRUG REPORTED AS: CELEXIA
  6. AMBIEN [Concomitant]
  7. ZOFRAN [Concomitant]
  8. REGLAN [Concomitant]
  9. CALCIUM [Concomitant]
  10. NORCO [Concomitant]

REACTIONS (4)
  - ASTHENIA [None]
  - DISEASE PROGRESSION [None]
  - DYSPNOEA [None]
  - PLEURAL EFFUSION [None]
